FAERS Safety Report 10269886 (Version 1)
Quarter: 2014Q2

REPORT INFORMATION
  Report Type: Spontaneous
  Country: US (occurrence: None)
  Receive Date: 20140626
  Receipt Date: 20140626
  Transmission Date: 20141212
  Serious: Yes (Other)
  Sender: FDA-Public Use
  Company Number: UNT-2014-002529

PATIENT
  Age: 76 Year
  Sex: Male
  Weight: 105.6 kg

DRUGS (4)
  1. TYVASO (TREPROSTINIL SODIUM) INHALATION GAS, 0.6MG/ML [Suspect]
     Indication: COR PULMONALE CHRONIC
     Route: 055
     Dates: start: 20120320
  2. TRACLEER /01587701/ (BOSENTAN) [Concomitant]
  3. SILDENAFIL (SILDENAFIL) [Concomitant]
  4. WARFARIN (WARFARIN) [Concomitant]

REACTIONS (4)
  - Dementia [None]
  - Insomnia [None]
  - Pruritus [None]
  - Treatment noncompliance [None]
